FAERS Safety Report 8178005-7 (Version None)
Quarter: 2012Q1

REPORT INFORMATION
  Report Type: 
  Country: None (occurrence: None)
  Receive Date: 20120301
  Receipt Date: 20120223
  Transmission Date: 20120608
  Serious: Yes (Hospitalization)
  Sender: FDA-Public Use
  Company Number: US-CELGENEUS-163-21880-11100610

PATIENT
  Sex: Female

DRUGS (3)
  1. REVLIMID [Suspect]
     Indication: MULTIPLE MYELOMA
     Dosage: 25 MILLIGRAM
     Route: 048
     Dates: start: 20091201
  2. ZOCOR [Concomitant]
     Route: 065
     Dates: end: 20110901
  3. ZOCOR [Concomitant]
     Route: 065
     Dates: start: 20120101

REACTIONS (1)
  - GALLBLADDER DISORDER [None]
